FAERS Safety Report 21925113 (Version 1)
Quarter: 2023Q1

REPORT INFORMATION
  Report Type: Spontaneous
  Country: GB (occurrence: GB)
  Receive Date: 20230130
  Receipt Date: 20230130
  Transmission Date: 20230418
  Serious: Yes (Hospitalization, Other)
  Sender: FDA-Public Use
  Company Number: GB-MYLANLABS-2022M1093446

PATIENT
  Age: 31 Year
  Sex: Male

DRUGS (1)
  1. CLOZARIL [Suspect]
     Active Substance: CLOZAPINE
     Indication: Schizophrenia
     Dosage: UNK (ESTIMATED STOP DATE 20-JAN-2023)
     Route: 048
     Dates: start: 20190619, end: 202301

REACTIONS (2)
  - Schizophrenia [Unknown]
  - Thrombocytopenia [Unknown]

NARRATIVE: CASE EVENT DATE: 20220912
